FAERS Safety Report 25177954 (Version 1)
Quarter: 2025Q2

REPORT INFORMATION
  Report Type: Spontaneous
  Country: CN (occurrence: CN)
  Receive Date: 20250409
  Receipt Date: 20250409
  Transmission Date: 20250717
  Serious: Yes (Other)
  Sender: Haleon PLC
  Company Number: CN-HALEON-2236924

PATIENT
  Age: 46 Year
  Sex: Male
  Weight: 80 kg

DRUGS (1)
  1. IBUPROFEN [Suspect]
     Active Substance: IBUPROFEN
     Indication: Intentional self-injury
     Route: 048
     Dates: start: 20250123, end: 20250123

REACTIONS (7)
  - Toxicity to various agents [Recovering/Resolving]
  - Thrombin time prolonged [Recovering/Resolving]
  - Aspartate aminotransferase increased [Recovering/Resolving]
  - Blood potassium decreased [Recovering/Resolving]
  - Vomiting [Recovered/Resolved]
  - Overdose [Recovering/Resolving]
  - Neutrophil percentage increased [Recovering/Resolving]

NARRATIVE: CASE EVENT DATE: 20250123
